FAERS Safety Report 5296533-9 (Version None)
Quarter: 2007Q2

REPORT INFORMATION
  Report Type: 
  Country: None (occurrence: None)
  Receive Date: 20070413
  Receipt Date: 20070330
  Transmission Date: 20071010
  Serious: Yes (Hospitalization)
  Sender: FDA-Public Use
  Company Number: US-AMGEN-STX198432

PATIENT
  Sex: Male

DRUGS (7)
  1. ENBREL [Suspect]
     Indication: JUVENILE ARTHRITIS
     Route: 058
     Dates: start: 20051101
  2. CYCLOSPORINE [Concomitant]
  3. PREDNISONE TAB [Concomitant]
  4. PLAQUENIL [Concomitant]
  5. TYLENOL W/ CODEINE [Concomitant]
  6. BENADRYL [Concomitant]
  7. TYLENOL [Concomitant]

REACTIONS (3)
  - CONDITION AGGRAVATED [None]
  - IRON DEFICIENCY ANAEMIA [None]
  - JUVENILE ARTHRITIS [None]
